FAERS Safety Report 7337245-7 (Version None)
Quarter: 2011Q1

REPORT INFORMATION
  Report Type: 
  Country: None (occurrence: None)
  Receive Date: 20110308
  Receipt Date: 20110303
  Transmission Date: 20110831
  Serious: Yes (Life-Threatening, Other)
  Sender: FDA-Public Use
  Company Number: IT-ELI_LILLY_AND_COMPANY-IT201102007017

PATIENT
  Sex: Female

DRUGS (13)
  1. LASITONE [Concomitant]
  2. REMERON [Concomitant]
  3. HUMALOG [Suspect]
     Dosage: 26 IU, UNK
     Route: 058
     Dates: start: 20010221, end: 20110221
  4. CORDARONE [Concomitant]
     Dosage: 200 MG, DAILY (1/D)
     Route: 048
     Dates: start: 20060101, end: 20110101
  5. PANTORC [Concomitant]
  6. IBUSTRIN [Concomitant]
  7. PROVISACOR [Concomitant]
  8. LASIX [Concomitant]
     Dosage: 2 D/F, UNK
     Route: 048
  9. LOBIVON [Concomitant]
     Dosage: 5 MG, UNK
  10. SINTROM [Concomitant]
     Indication: ATRIAL FIBRILLATION
     Dosage: 4 MG, AS NEEDED
     Route: 048
     Dates: start: 20010223, end: 20110223
  11. SPIRIVA [Concomitant]
  12. HUMALOG [Suspect]
     Indication: TYPE 1 DIABETES MELLITUS
     Dosage: 52 D/F, UNK
     Route: 058
     Dates: start: 20110222, end: 20110222
  13. ALIFLUS DISKUS [Concomitant]
     Route: 055

REACTIONS (3)
  - INTENTIONAL OVERDOSE [None]
  - HYPOGLYCAEMIC COMA [None]
  - HYPOCOAGULABLE STATE [None]
